FAERS Safety Report 4578074-7 (Version None)
Quarter: 2005Q1

REPORT INFORMATION
  Report Type: 
  Country: None (occurrence: None)
  Receive Date: 20050202
  Receipt Date: 20050202
  Transmission Date: 20050727
  Serious: Yes (Hospitalization, Disabling)
  Sender: FDA-Public Use
  Company Number: None

PATIENT
  Age: 75 Year
  Sex: Female
  Weight: 67.1324 kg

DRUGS (6)
  1. BEXTRA [Suspect]
     Indication: ARTHRITIS
     Dosage: 10 MG ONCE DAILY
     Dates: start: 20040320, end: 20041212
  2. AVALIDE 300/2.5 [Concomitant]
  3. METOPROLOL [Concomitant]
  4. LORAZEPAM [Concomitant]
  5. ZOCOR [Concomitant]
  6. ACLOVATE [Concomitant]

REACTIONS (5)
  - BALANCE DISORDER [None]
  - CEREBROVASCULAR ACCIDENT [None]
  - COORDINATION ABNORMAL [None]
  - FEELING DRUNK [None]
  - GAIT DISTURBANCE [None]
